FAERS Safety Report 6480636-7 (Version None)
Quarter: 2009Q4

REPORT INFORMATION
  Report Type: 
  Country: None (occurrence: None)
  Receive Date: 20091208
  Receipt Date: 20091127
  Transmission Date: 20100525
  Serious: Yes (Hospitalization, Other)
  Sender: FDA-Public Use
  Company Number: US-PFIZER INC-2009305056

PATIENT
  Sex: Female

DRUGS (2)
  1. CHANTIX [Suspect]
     Indication: SMOKING CESSATION THERAPY
     Route: 048
  2. CHANTIX [Suspect]
     Dosage: 0.5 MG, 1X/DAY

REACTIONS (6)
  - EMOTIONAL DISTRESS [None]
  - HALLUCINATION [None]
  - HALLUCINATION, VISUAL [None]
  - MENTAL DISORDER [None]
  - PARANOIA [None]
  - SCHIZOPHRENIFORM DISORDER [None]
